FAERS Safety Report 9878231 (Version 2)
Quarter: 2014Q1

REPORT INFORMATION
  Report Type: Report from Study
  Country: US (occurrence: US)
  Receive Date: 20140206
  Receipt Date: 20140206
  Transmission Date: 20141002
  Serious: Yes (Other)
  Sender: FDA-Public Use
  Company Number: US-ACTELION-A-US2013-91772

PATIENT
  Age: 47 Year
  Sex: Female

DRUGS (3)
  1. TRACLEER [Suspect]
     Indication: COR PULMONALE CHRONIC
     Dosage: UNK
     Route: 048
  2. SILDENAFIL [Concomitant]
  3. COUMADIN [Concomitant]

REACTIONS (6)
  - Systemic lupus erythematosus [Unknown]
  - Nasal congestion [Unknown]
  - Bipolar I disorder [Unknown]
  - Hormone level abnormal [Unknown]
  - Intervertebral disc protrusion [Unknown]
  - Arthritis [Unknown]
